FAERS Safety Report 9395916 (Version 3)
Quarter: 2013Q4

REPORT INFORMATION
  Report Type: Report from Study
  Country: DE (occurrence: DE)
  Receive Date: 20130711
  Receipt Date: 20131022
  Transmission Date: 20140711
  Serious: Yes (Death, Hospitalization)
  Sender: FDA-Public Use
  Company Number: DE-CELGENEUS-062-C4047-11121913

PATIENT
  Age: 70 Year
  Sex: Male
  Weight: 66 kg

DRUGS (9)
  1. CC-4047 [Suspect]
     Indication: MYELOFIBROSIS
     Dosage: 2 MILLIGRAM
     Route: 048
     Dates: start: 20100119
  2. CC-4047 [Suspect]
     Dosage: 1 MILLIGRAM
     Route: 048
     Dates: start: 20100316
  3. CC-4047 [Suspect]
     Dosage: .5 MILLIGRAM
     Route: 048
     Dates: start: 20110524, end: 20111204
  4. PREDNISOLONE [Suspect]
     Indication: MYELOFIBROSIS
     Dosage: 2.5 MILLIGRAM
     Route: 065
     Dates: start: 201101, end: 201108
  5. PREDNISOLONE [Suspect]
     Dosage: 2.5 MILLIGRAM
     Route: 048
     Dates: start: 20120419, end: 20120506
  6. LASIX [Concomitant]
     Indication: PRODUCT USED FOR UNKNOWN INDICATION
     Dosage: 20 MILLIGRAM
     Route: 048
     Dates: start: 201110
  7. EXJADE [Concomitant]
     Indication: PRODUCT USED FOR UNKNOWN INDICATION
     Dosage: 1000 MILLIGRAM
     Route: 048
     Dates: start: 20100518, end: 201205
  8. EXJADE [Concomitant]
     Dosage: 1000 MILLIGRAM
     Route: 048
     Dates: start: 201101, end: 201205
  9. ERYTHROCYTE CONCENTRATES [Concomitant]
     Indication: ANAEMIA
     Route: 041

REACTIONS (1)
  - Renal cell carcinoma [Fatal]
